FAERS Safety Report 6436765-7 (Version None)
Quarter: 2009Q4

REPORT INFORMATION
  Report Type: 
  Country: None (occurrence: None)
  Receive Date: 20091109
  Receipt Date: 20091019
  Transmission Date: 20100525
  Serious: Yes (Other)
  Sender: FDA-Public Use
  Company Number: 2280705-2009-00016

PATIENT
  Sex: Male

DRUGS (1)
  1. ORAJEL SEVERE PAIN FORMULA ORAL PAIN RELIEVER [Suspect]
     Indication: TOOTHACHE
     Dosage: THREE APPLICATIONS

REACTIONS (4)
  - GINGIVAL INFECTION [None]
  - HYPERSENSITIVITY [None]
  - INFLAMMATION [None]
  - SWELLING FACE [None]
